FAERS Safety Report 4364144-5 (Version None)
Quarter: 2004Q2

REPORT INFORMATION
  Report Type: 
  Country: None (occurrence: None)
  Receive Date: 20040525
  Receipt Date: 20040513
  Transmission Date: 20050107
  Serious: Yes (Hospitalization)
  Sender: FDA-Public Use
  Company Number: FR-AMGEN-UK076234

PATIENT
  Age: 57 Year
  Sex: Male
  Weight: 115 kg

DRUGS (6)
  1. NEUPOGEN [Suspect]
     Indication: CHEMOTHERAPY
     Route: 058
     Dates: start: 20040506, end: 20040509
  2. DOXORUBICIN HYDROCHLORIDE [Concomitant]
     Dates: start: 20031201
  3. VINCRISTINE [Concomitant]
     Dates: start: 20031201
  4. CYCLOPHOSPHAMIDE [Concomitant]
     Dates: start: 20031201
  5. RITUXIMAB [Concomitant]
     Dates: start: 20031201
  6. PREDNISONE [Concomitant]
     Dates: start: 20031201

REACTIONS (1)
  - PHLEBITIS DEEP [None]
